FAERS Safety Report 8552572-3 (Version None)
Quarter: 2012Q3

REPORT INFORMATION
  Report Type: 
  Country: None (occurrence: None)
  Receive Date: 20120719
  Receipt Date: 20120705
  Transmission Date: 20120928
  Serious: Yes (Other)
  Sender: FDA-Public Use
  Company Number: 12-502

PATIENT
  Age: 33 Year
  Sex: Female
  Weight: 57 kg

DRUGS (2)
  1. ALEVE [Suspect]
     Dosage: 4DF / PRN / ORAL
     Route: 048
     Dates: start: 20120630
  2. TYLENOL (PARACETAMOL) (PARACETAMOL) [Concomitant]

REACTIONS (4)
  - INTENTIONAL SELF-INJURY [None]
  - ABNORMAL BEHAVIOUR [None]
  - MYDRIASIS [None]
  - SPEECH DISORDER [None]
